FAERS Safety Report 17543182 (Version 1)
Quarter: 2020Q1

REPORT INFORMATION
  Report Type: Spontaneous
  Country: IT (occurrence: IT)
  Receive Date: 20200316
  Receipt Date: 20200316
  Transmission Date: 20200409
  Serious: Yes (Other)
  Sender: FDA-Public Use
  Company Number: IT-B.I. PHARMACEUTICALS,INC./RIDGEFIELD-2020-12-013644

PATIENT
  Age: 84 Year
  Sex: Male

DRUGS (1)
  1. MICARDIS PLUS [Suspect]
     Active Substance: HYDROCHLOROTHIAZIDE\TELMISARTAN
     Indication: HYPERTENSION
     Dosage: 80 MG/12.5 MG TABLETS
     Route: 048
     Dates: start: 20190601, end: 20200220

REACTIONS (2)
  - Angioedema [Recovered/Resolved]
  - Xerosis [Recovered/Resolved]

NARRATIVE: CASE EVENT DATE: 20200220
